FAERS Safety Report 8179934-0 (Version None)
Quarter: 2012Q1

REPORT INFORMATION
  Report Type: 
  Country: None (occurrence: None)
  Receive Date: 20120302
  Receipt Date: 20120224
  Transmission Date: 20120608
  Serious: Yes (Hospitalization, Other)
  Sender: FDA-Public Use
  Company Number: US-BRISTOL-MYERS SQUIBB COMPANY-15882152

PATIENT
  Age: 31 Year
  Sex: Male
  Weight: 63 kg

DRUGS (10)
  1. ALOXI [Concomitant]
     Dates: start: 20100525, end: 20100615
  2. EMEND [Concomitant]
     Dates: start: 20100525, end: 20100615
  3. CIPROFLOXACIN [Concomitant]
     Dates: start: 20101014, end: 20101101
  4. BEVACIZUMAB [Suspect]
     Indication: NON-SMALL CELL LUNG CANCER
     Dosage: LAST DOSE:15JUN10
     Route: 042
     Dates: start: 20100525, end: 20100624
  5. MULTI-VITAMIN [Concomitant]
     Dates: start: 20100702, end: 20101101
  6. BENADRYL [Concomitant]
     Dates: start: 20100525, end: 20100615
  7. DECADRON [Concomitant]
     Dates: start: 20100525, end: 20100615
  8. PACLITAXEL [Suspect]
     Indication: NON-SMALL CELL LUNG CANCER
     Dosage: LAST DOSE:15JUN10
     Route: 042
     Dates: start: 20100525, end: 20100624
  9. CARBOPLATIN [Suspect]
     Indication: NON-SMALL CELL LUNG CANCER
     Dosage: AUC=6,LAST DOSE:15JUN10
     Route: 042
     Dates: start: 20100525, end: 20100624
  10. PEPCID [Concomitant]
     Dates: start: 20100525, end: 20100615

REACTIONS (5)
  - ASTHENIA [None]
  - HYDROPNEUMOTHORAX [None]
  - PYREXIA [None]
  - ACUTE RESPIRATORY FAILURE [None]
  - BLOOD PH DECREASED [None]
